FAERS Safety Report 16532911 (Version 3)
Quarter: 2019Q3

REPORT INFORMATION
  Report Type: Report from Study
  Country: CA (occurrence: CA)
  Receive Date: 20190705
  Receipt Date: 20190709
  Transmission Date: 20191004
  Serious: Yes (Death, Hospitalization, Other)
  Sender: FDA-Public Use
  Company Number: CA-PFIZER INC-2013334431

PATIENT
  Age: 51 Year
  Sex: Male

DRUGS (2)
  1. ENBREL [Suspect]
     Active Substance: ETANERCEPT
     Indication: PSORIATIC ARTHROPATHY
     Dosage: 50 MG, FREQ: 1 WEEK; INTERVAL :1
     Dates: start: 2013, end: 20130912
  2. METHOTREXATE SODIUM. [Suspect]
     Active Substance: METHOTREXATE SODIUM
     Dosage: UNK

REACTIONS (7)
  - Death [Fatal]
  - Toxicity to various agents [Fatal]
  - Arthralgia [Fatal]
  - Skin disorder [Unknown]
  - Multiple organ dysfunction syndrome [Fatal]
  - Endocarditis [Fatal]
  - Malaise [Fatal]

NARRATIVE: CASE EVENT DATE: 20130912
